FAERS Safety Report 17733701 (Version 3)
Quarter: 2020Q2

REPORT INFORMATION
  Report Type: Spontaneous
  Country: US (occurrence: US)
  Receive Date: 20200501
  Receipt Date: 20200528
  Transmission Date: 20200714
  Serious: Yes (Hospitalization, Other)
  Sender: FDA-Public Use
  Company Number: US-ASTELLAS-2020US015139

PATIENT
  Age: 81 Year
  Sex: Male

DRUGS (1)
  1. MYRBETRIQ [Suspect]
     Active Substance: MIRABEGRON
     Indication: HYPERTONIC BLADDER
     Route: 048

REACTIONS (12)
  - Fall [Unknown]
  - Peripheral swelling [Recovered/Resolved]
  - Pulmonary oedema [Recovered/Resolved]
  - Somnolence [Recovered/Resolved]
  - Amnesia [Unknown]
  - Unresponsive to stimuli [Recovered/Resolved]
  - Confusional state [Unknown]
  - Gait disturbance [Recovered/Resolved]
  - Aggression [Unknown]
  - Product dose omission [Unknown]
  - Loss of consciousness [Recovered/Resolved]
  - Somnolence [Recovered/Resolved]

NARRATIVE: CASE EVENT DATE: 201910
